FAERS Safety Report 5080756-8 (Version None)
Quarter: 2006Q3

REPORT INFORMATION
  Report Type: 
  Country: None (occurrence: None)
  Receive Date: 20060809
  Receipt Date: 20060727
  Transmission Date: 20061208
  Serious: Yes (Hospitalization)
  Sender: FDA-Public Use
  Company Number: 2006092640

PATIENT
  Age: 41 Year
  Sex: Male

DRUGS (2)
  1. SUTENT [Suspect]
     Indication: RENAL CELL CARCINOMA STAGE UNSPECIFIED
     Dosage: 50 MG (50 MG, DAILY FOR 28 DAY), ORAL - SEE IMAGE
     Route: 048
     Dates: start: 20060324, end: 20060407
  2. SUTENT [Suspect]
     Indication: RENAL CELL CARCINOMA STAGE UNSPECIFIED
     Dosage: 50 MG (50 MG, DAILY FOR 28 DAY), ORAL - SEE IMAGE
     Route: 048
     Dates: start: 20060714, end: 20060724

REACTIONS (10)
  - ABDOMINAL PAIN UPPER [None]
  - ANOREXIA [None]
  - DEHYDRATION [None]
  - DRY THROAT [None]
  - FATIGUE [None]
  - MALAISE [None]
  - NAUSEA [None]
  - PAIN [None]
  - PYREXIA [None]
  - SEPSIS [None]
